FAERS Safety Report 22101586 (Version 1)
Quarter: 2023Q1

REPORT INFORMATION
  Report Type: Report from Study
  Country: CN (occurrence: CN)
  Receive Date: 20230316
  Receipt Date: 20230316
  Transmission Date: 20230418
  Serious: Yes (Other)
  Sender: FDA-Public Use
  Company Number: CN-JNJFOC-20230322517

PATIENT
  Age: 56 Year
  Sex: Male

DRUGS (1)
  1. SPORANOX [Suspect]
     Active Substance: ITRACONAZOLE
     Indication: Acute pulmonary histoplasmosis
     Route: 048

REACTIONS (3)
  - Arrhythmia [Recovered/Resolved]
  - Hypokalaemia [Unknown]
  - Off label use [Unknown]
